FAERS Safety Report 10609800 (Version 1)
Quarter: 2014Q4

REPORT INFORMATION
  Report Type: Spontaneous
  Country: IT (occurrence: None)
  Receive Date: 20141124
  Receipt Date: 20141124
  Transmission Date: 20150529
  Serious: Yes (Other)
  Sender: FDA-Public Use
  Company Number: 2629243

PATIENT
  Age: 67 Year
  Sex: Male

DRUGS (1)
  1. OXALIPLATIN. [Suspect]
     Active Substance: OXALIPLATIN
     Indication: PRODUCT USED FOR UNKNOWN INDICATION
     Dates: start: 20141022, end: 20141022

REACTIONS (5)
  - Chills [None]
  - Vomiting [None]
  - Cyanosis [None]
  - Hyperpyrexia [None]
  - Diarrhoea [None]

NARRATIVE: CASE EVENT DATE: 20141022
